FAERS Safety Report 18958674 (Version 1)
Quarter: 2021Q1

REPORT INFORMATION
  Report Type: Spontaneous
  Country: US (occurrence: US)
  Receive Date: 20210302
  Receipt Date: 20210302
  Transmission Date: 20210420
  Serious: Yes (Hospitalization, Other)
  Sender: FDA-Public Use
  Company Number: US-ACCORD-218236

PATIENT
  Age: 64 Year
  Sex: Female

DRUGS (6)
  1. DOCETAXEL. [Suspect]
     Active Substance: DOCETAXEL
     Indication: LEIOMYOSARCOMA
  2. GEMCITABINE/GEMCITABINE HYDROCHLORIDE [Suspect]
     Active Substance: GEMCITABINE\GEMCITABINE HYDROCHLORIDE
     Indication: LEIOMYOSARCOMA
  3. OLARATUMAB [Suspect]
     Active Substance: OLARATUMAB
     Indication: LEIOMYOSARCOMA
  4. DOXORUBICIN [Suspect]
     Active Substance: DOXORUBICIN
     Indication: LEIOMYOSARCOMA
  5. LETROZOLE. [Suspect]
     Active Substance: LETROZOLE
     Indication: LEIOMYOSARCOMA
  6. IFOSFAMIDE. [Suspect]
     Active Substance: IFOSFAMIDE
     Indication: LEIOMYOSARCOMA

REACTIONS (8)
  - Mucosal inflammation [Unknown]
  - Skin turgor decreased [Unknown]
  - Off label use [Unknown]
  - Nephropathy toxic [Recovering/Resolving]
  - Nephrogenic diabetes insipidus [Recovering/Resolving]
  - Tachycardia [Recovering/Resolving]
  - Acidosis [Recovering/Resolving]
  - Fanconi syndrome [Recovering/Resolving]
